FAERS Safety Report 10777574 (Version 1)
Quarter: 2015Q1

REPORT INFORMATION
  Report Type: Spontaneous
  Country: JP (occurrence: JP)
  Receive Date: 20150209
  Receipt Date: 20150209
  Transmission Date: 20150721
  Serious: Yes (Other)
  Sender: FDA-Public Use
  Company Number: JP-PFIZER INC-2015003817

PATIENT
  Age: 76 Year
  Sex: Male

DRUGS (2)
  1. AMBISOME [Concomitant]
     Active Substance: AMPHOTERICIN B
     Indication: MYCOTIC CORNEAL ULCER
     Dosage: UNK
  2. VFEND [Suspect]
     Active Substance: VORICONAZOLE
     Indication: MYCOTIC CORNEAL ULCER
     Dosage: UNK
     Route: 047

REACTIONS (2)
  - Blindness [Not Recovered/Not Resolved]
  - Product use issue [Unknown]
